FAERS Safety Report 6803228-6 (Version None)
Quarter: 2010Q2

REPORT INFORMATION
  Report Type: 
  Country: None (occurrence: None)
  Receive Date: 20100628
  Receipt Date: 20100622
  Transmission Date: 20101027
  Serious: Yes (Hospitalization)
  Sender: FDA-Public Use
  Company Number: B0661814A

PATIENT
  Age: 70 Year
  Sex: Female

DRUGS (6)
  1. AUGMENTIN '125' [Suspect]
     Indication: DRUG USE FOR UNKNOWN INDICATION
     Dosage: 1G THREE TIMES PER DAY
     Route: 048
     Dates: start: 20100222, end: 20100308
  2. PACLITAXEL [Suspect]
     Indication: CHEMOTHERAPY
     Route: 042
     Dates: start: 20100114, end: 20100220
  3. CARBOPLATIN [Suspect]
     Indication: CHEMOTHERAPY
     Route: 042
     Dates: start: 20100114, end: 20100220
  4. AVASTIN [Suspect]
     Indication: CHEMOTHERAPY
     Route: 042
     Dates: start: 20100114, end: 20100220
  5. CORDARONE [Suspect]
     Indication: DRUG USE FOR UNKNOWN INDICATION
     Route: 065
     Dates: start: 20100222
  6. ROCEPHIN [Suspect]
     Indication: DRUG USE FOR UNKNOWN INDICATION
     Dosage: 2G PER DAY
     Route: 042
     Dates: start: 20100222, end: 20100326

REACTIONS (25)
  - ADVERSE DRUG REACTION [None]
  - BLISTER [None]
  - BLOOD BILIRUBIN INCREASED [None]
  - BLOOD ZINC DECREASED [None]
  - DERMATITIS [None]
  - DERMATITIS BULLOUS [None]
  - DERMATITIS EXFOLIATIVE [None]
  - DERMATOSIS [None]
  - ESCHAR [None]
  - EXFOLIATIVE RASH [None]
  - GENERAL PHYSICAL HEALTH DETERIORATION [None]
  - HEPATOCELLULAR INJURY [None]
  - HYPERTHERMIA [None]
  - HYPOALBUMINAEMIA [None]
  - HYPOPROTEINAEMIA [None]
  - HYPOVITAMINOSIS [None]
  - INFLAMMATION [None]
  - LIVER FUNCTION TEST ABNORMAL [None]
  - MUCOSAL INFLAMMATION [None]
  - PAIN [None]
  - PURULENT DISCHARGE [None]
  - RASH ERYTHEMATOUS [None]
  - SKIN EROSION [None]
  - SKIN LESION [None]
  - SKIN ULCER [None]
